FAERS Safety Report 15053546 (Version 1)
Quarter: 2018Q2

REPORT INFORMATION
  Report Type: Report from Study
  Country: US (occurrence: US)
  Receive Date: 20180622
  Receipt Date: 20180622
  Transmission Date: 20180711
  Serious: No
  Sender: FDA-Public Use
  Company Number: US-AMGEN-USASL2016071852

PATIENT
  Age: 58 Year
  Sex: Male

DRUGS (1)
  1. NPLATE [Suspect]
     Active Substance: ROMIPLOSTIM
     Indication: BLOOD DISORDER
     Dosage: UNK UNK, UNK
     Route: 065

REACTIONS (4)
  - Papule [Unknown]
  - Rash papular [Unknown]
  - Off label use [Unknown]
  - Urticaria [Unknown]
